FAERS Safety Report 4457681-6 (Version None)
Quarter: 2004Q3

REPORT INFORMATION
  Report Type: 
  Country: None (occurrence: None)
  Receive Date: 20040831
  Receipt Date: 20040507
  Transmission Date: 20050211
  Serious: No
  Sender: FDA-Public Use
  Company Number: MPS1-10182

PATIENT
  Age: 6 Year
  Sex: Male

DRUGS (1)
  1. ALDURAZYME [Suspect]
     Indication: MUCOPOLYSACCHARIDOSIS IH/S
     Dosage: 0.58 MG/KG QWK IV
     Route: 042
     Dates: start: 20030804

REACTIONS (1)
  - PAIN IN EXTREMITY [None]
